FAERS Safety Report 6455550-3 (Version None)
Quarter: 2009Q4

REPORT INFORMATION
  Report Type: 
  Country: None (occurrence: None)
  Receive Date: 20091125
  Receipt Date: 20090921
  Transmission Date: 20100525
  Serious: No
  Sender: FDA-Public Use
  Company Number: US-ABBOTT-09P-163-0598543-00

PATIENT
  Sex: Female
  Weight: 60.836 kg

DRUGS (11)
  1. SIMCOR [Suspect]
     Indication: BLOOD CHOLESTEROL INCREASED
     Dosage: 500/20 MG
     Dates: start: 20090917
  2. PRILOSEC [Concomitant]
     Indication: DRUG USE FOR UNKNOWN INDICATION
  3. ALENDRONATE SODIUM [Concomitant]
     Indication: DRUG USE FOR UNKNOWN INDICATION
  4. SKELAXIN [Concomitant]
     Indication: DRUG USE FOR UNKNOWN INDICATION
  5. BENTYL [Concomitant]
     Indication: DRUG USE FOR UNKNOWN INDICATION
  6. COLCHICIN [Concomitant]
     Indication: DRUG USE FOR UNKNOWN INDICATION
  7. NORTRIPTYLINE HCL [Concomitant]
     Indication: DRUG USE FOR UNKNOWN INDICATION
  8. CALCIUM [Concomitant]
     Indication: DRUG USE FOR UNKNOWN INDICATION
  9. VITAMIN D [Concomitant]
     Indication: DRUG USE FOR UNKNOWN INDICATION
  10. NASONEX [Concomitant]
     Indication: DRUG USE FOR UNKNOWN INDICATION
  11. PROAIR HFA [Concomitant]
     Indication: DRUG USE FOR UNKNOWN INDICATION

REACTIONS (1)
  - POLLAKIURIA [None]
